FAERS Safety Report 21437808 (Version 1)
Quarter: 2022Q4

REPORT INFORMATION
  Report Type: Spontaneous
  Country: US (occurrence: None)
  Receive Date: 20221011
  Receipt Date: 20221011
  Transmission Date: 20230113
  Serious: No
  Sender: FDA-Public Use
  Company Number: 2022A342241

PATIENT
  Sex: Male

DRUGS (1)
  1. SEROQUEL [Suspect]
     Active Substance: QUETIAPINE FUMARATE
     Indication: Sleep disorder
     Route: 048

REACTIONS (6)
  - Confusional state [Unknown]
  - Feeling abnormal [Unknown]
  - Somnolence [Unknown]
  - Fatigue [Unknown]
  - Laziness [Unknown]
  - Off label use [Unknown]
